FAERS Safety Report 25226399 (Version 1)
Quarter: 2025Q2

REPORT INFORMATION
  Report Type: Spontaneous
  Country: JP (occurrence: JP)
  Receive Date: 20250422
  Receipt Date: 20250422
  Transmission Date: 20250716
  Serious: Yes (Hospitalization)
  Sender: ALEXION PHARMACEUTICALS
  Company Number: JP-ASTRAZENECA-250037362_032320_P_1

PATIENT
  Age: 26 Year

DRUGS (3)
  1. SAPHNELO [Suspect]
     Active Substance: ANIFROLUMAB-FNIA
     Indication: Systemic lupus erythematosus
  2. TACROLIMUS [Concomitant]
     Active Substance: TACROLIMUS
     Route: 065
  3. UNSPECIFIED INGREDIENT [Concomitant]
     Active Substance: UNSPECIFIED INGREDIENT
     Route: 065

REACTIONS (1)
  - Aortitis [Not Recovered/Not Resolved]
